FAERS Safety Report 24118056 (Version 1)
Quarter: 2024Q3

REPORT INFORMATION
  Report Type: Spontaneous
  Country: GB (occurrence: GB)
  Receive Date: 20240722
  Receipt Date: 20240722
  Transmission Date: 20241017
  Serious: Yes (Other)
  Sender: TEVA
  Company Number: None

PATIENT
  Age: 6 Year
  Sex: Male

DRUGS (3)
  1. CYCLOSPORINE [Suspect]
     Active Substance: CYCLOSPORINE
     Indication: Vernal keratoconjunctivitis
     Route: 065
  2. OLOPATADINE [Concomitant]
     Active Substance: OLOPATADINE
     Indication: Vernal keratoconjunctivitis
     Route: 065
  3. MINIMS DEXAMETHASONE [Concomitant]
     Indication: Vernal keratoconjunctivitis
     Route: 065

REACTIONS (2)
  - Hypothermia [Recovered/Resolved]
  - Tremor [Recovered/Resolved]
